FAERS Safety Report 21638143 (Version 10)
Quarter: 2023Q4

REPORT INFORMATION
  Report Type: Report from Study
  Country: PT (occurrence: PT)
  Receive Date: 20221124
  Receipt Date: 20231018
  Transmission Date: 20240109
  Serious: Yes (Hospitalization, Other)
  Sender: FDA-Public Use
  Company Number: PT-ABBVIE-4211627

PATIENT
  Age: 74 Year
  Sex: Male

DRUGS (9)
  1. HUMIRA [Suspect]
     Active Substance: ADALIMUMAB
     Indication: Rheumatoid arthritis
     Dosage: FORM STRENGTH: 40
     Route: 058
     Dates: start: 20211030, end: 20220904
  2. OMEPRAZOLE [Concomitant]
     Active Substance: OMEPRAZOLE
     Indication: Product used for unknown indication
     Dosage: FREQUENCY TEXT: AT BREAKFAST PRODUCT
  3. ACEMETACIN [Concomitant]
     Active Substance: ACEMETACIN
     Indication: Product used for unknown indication
     Dosage: FORM STRENGTH: 60 MG?FREQUENCY TEXT: AT BREAKFAST AND AT DINNER PRODUCT?START DATE TEXT: UNKNOWN?...
  4. HERBALS\SAW PALMETTO [Concomitant]
     Active Substance: HERBALS\SAW PALMETTO
     Indication: Product used for unknown indication
     Dosage: FORM STRENGTH: 160 PRODUCT ?FREQUENCY TEXT: AT BREAKFAST AND AT DINNER PRODUCT?START DATE TEXT: U...
  5. ARAVA [Concomitant]
     Active Substance: LEFLUNOMIDE
     Indication: Product used for unknown indication
     Dosage: FORM STRENGTH: 20 MG
     Dates: end: 2022
  6. Lepicortinolo (prednisolone) [Concomitant]
     Indication: Rheumatoid arthritis
     Dosage: 5 MILLIGRAM
     Dates: start: 2020, end: 202209
  7. Lepicortinolo (prednisolone) [Concomitant]
     Indication: Rheumatoid arthritis
     Dosage: FORM STRENGTH: 5 MG?TEXT: AT BREAKFAST AND AT DINNER
     Dates: start: 20221009
  8. SIMVASTATIN MEDINEO [Concomitant]
     Indication: Product used for unknown indication
     Dosage: FORM STRENGTH: 20 MG?FREQUENCY TEXT: AT DINNER
  9. FOLIC ACID [Concomitant]
     Active Substance: FOLIC ACID
     Indication: Product used for unknown indication
     Dosage: STRENGTH: 5MG?FREQUENCY TEXT: IN THE MORNING
     Dates: start: 20221009

REACTIONS (6)
  - Tendon rupture [Recovered/Resolved]
  - Cough [Unknown]
  - Skin erosion [Unknown]
  - Arthralgia [Recovering/Resolving]
  - Localised infection [Recovered/Resolved]
  - Rheumatoid arthritis [Not Recovered/Not Resolved]

NARRATIVE: CASE EVENT DATE: 20220101
